FAERS Safety Report 14188791 (Version 13)
Quarter: 2018Q2

REPORT INFORMATION
  Report Type: Report from Study
  Country: DE (occurrence: DE)
  Receive Date: 20171114
  Receipt Date: 20180621
  Transmission Date: 20180711
  Serious: Yes (Death, Hospitalization, Other)
  Sender: FDA-Public Use
  Company Number: DE-BRISTOL-MYERS SQUIBB COMPANY-BMS-2017-101848

PATIENT
  Age: 62 Year
  Sex: Male

DRUGS (2)
  1. LAXOBERAL [Concomitant]
     Active Substance: SODIUM PICOSULFATE
     Indication: GASTRIC DISORDER
     Dosage: 20 GTT, UNK
     Route: 065
     Dates: start: 20171026
  2. NIVOLUMAB [Suspect]
     Active Substance: NIVOLUMAB
     Indication: METASTATIC RENAL CELL CARCINOMA
     Dosage: 3 MG/KG, Q2WK
     Route: 042
     Dates: start: 20171016, end: 20171016

REACTIONS (6)
  - General physical health deterioration [Fatal]
  - Decreased appetite [Unknown]
  - Malignant neoplasm progression [Fatal]
  - Fatigue [Unknown]
  - Ascites [Recovered/Resolved]
  - Constipation [Unknown]

NARRATIVE: CASE EVENT DATE: 20171025
